FAERS Safety Report 16462811 (Version 2)
Quarter: 2020Q1

REPORT INFORMATION
  Report Type: Report from Study
  Country: None (occurrence: US)
  Receive Date: 20190621
  Receipt Date: 20200114
  Transmission Date: 20200409
  Serious: Yes (Hospitalization, Other)
  Sender: FDA-Public Use
  Company Number: US-ABBVIE-19K-163-2828920-00

PATIENT
  Age: 55 Year
  Sex: Female

DRUGS (8)
  1. HUMIRA [Suspect]
     Active Substance: ADALIMUMAB
     Route: 058
     Dates: start: 20190110, end: 20190124
  2. HUMIRA [Suspect]
     Active Substance: ADALIMUMAB
     Route: 058
     Dates: start: 20190207, end: 20190222
  3. FLAGYL [Concomitant]
     Active Substance: METRONIDAZOLE\METRONIDAZOLE HYDROCHLORIDE
     Indication: PRODUCT USED FOR UNKNOWN INDICATION
  4. HUMIRA [Suspect]
     Active Substance: ADALIMUMAB
     Route: 058
     Dates: start: 20181213, end: 20181227
  5. HUMIRA [Suspect]
     Active Substance: ADALIMUMAB
     Route: 058
     Dates: start: 20190307, end: 20190322
  6. PREDNISONE. [Concomitant]
     Active Substance: PREDNISONE
     Indication: PRODUCT USED FOR UNKNOWN INDICATION
     Dosage: RANGING FROM 20 MG PER DAY DOWN TO 2.5 MG PER DAY
     Route: 065
  7. CIPRO [Concomitant]
     Active Substance: CIPROFLOXACIN HYDROCHLORIDE
     Indication: PRODUCT USED FOR UNKNOWN INDICATION
  8. HUMIRA [Suspect]
     Active Substance: ADALIMUMAB
     Indication: CROHN^S DISEASE
     Dosage: HUMIRA CITRATE FREE
     Route: 058
     Dates: start: 20181115, end: 20181129

REACTIONS (12)
  - Pyrexia [Unknown]
  - Pyrexia [Unknown]
  - Intestinal stenosis [Recovering/Resolving]
  - Muscle spasms [Unknown]
  - Obstruction [Unknown]
  - Nausea [Unknown]
  - Cystitis [Unknown]
  - Infection [Unknown]
  - Diarrhoea [Unknown]
  - Oophoritis [Unknown]
  - Gastrointestinal infection [Recovering/Resolving]
  - Infection [Unknown]

NARRATIVE: CASE EVENT DATE: 2018
